FAERS Safety Report 16896731 (Version 1)
Quarter: 2019Q4

REPORT INFORMATION
  Report Type: Spontaneous
  Country: JP (occurrence: JP)
  Receive Date: 20191008
  Receipt Date: 20191008
  Transmission Date: 20200122
  Serious: Yes (Other)
  Sender: FDA-Public Use
  Company Number: JP-SUNOVION-2019SUN003379

PATIENT
  Age: 82 Year
  Sex: Male

DRUGS (4)
  1. AMITIZA [Concomitant]
     Active Substance: LUBIPROSTONE
     Dosage: 48 MG, QD
  2. LUNESTA [Suspect]
     Active Substance: ESZOPICLONE
     Indication: INSOMNIA
     Dosage: 1 MG, QD
     Route: 048
  3. RISPERIDONE. [Suspect]
     Active Substance: RISPERIDONE
     Dosage: 1 MG, QD
     Route: 048
  4. SUVOREXANT. [Suspect]
     Active Substance: SUVOREXANT
     Dosage: 15 MG, QD
     Route: 065
     Dates: start: 20190719, end: 20190719

REACTIONS (5)
  - Disuse syndrome [Unknown]
  - Diplegia [Unknown]
  - Decreased activity [Unknown]
  - Sedation complication [Recovered/Resolved]
  - Brachial plexus injury [Unknown]

NARRATIVE: CASE EVENT DATE: 20190719
